FAERS Safety Report 4503422-3 (Version None)
Quarter: 2004Q4

REPORT INFORMATION
  Report Type: 
  Country: None (occurrence: None)
  Receive Date: 20041117
  Receipt Date: 20041105
  Transmission Date: 20050328
  Serious: Yes (Other)
  Sender: FDA-Public Use
  Company Number: GB-JNJFOC-20041102048

PATIENT
  Age: 43 Year
  Sex: Female
  Weight: 73 kg

DRUGS (5)
  1. TOPIRMATE [Suspect]
     Indication: EPILEPSY
     Route: 049
     Dates: start: 20031029
  2. DICLOFENAC [Concomitant]
     Indication: BACK PAIN
     Route: 065
     Dates: start: 20041018, end: 20041025
  3. TRIMETHOPRIM [Concomitant]
     Indication: URINARY TRACT INFECTION
     Route: 065
     Dates: start: 20040916, end: 20040923
  4. SENNA [Concomitant]
     Indication: CONSTIPATION
     Route: 065
     Dates: start: 20040108, end: 20040502
  5. FYBOGEL [Concomitant]
     Indication: CONSTIPATION
     Route: 065

REACTIONS (1)
  - NAIL DISORDER [None]
